FAERS Safety Report 9822905 (Version 2)
Quarter: 2014Q1

REPORT INFORMATION
  Report Type: Report from Study
  Country: US (occurrence: US)
  Receive Date: 20140116
  Receipt Date: 20140116
  Transmission Date: 20141002
  Serious: Yes (Life-Threatening, Hospitalization, Other)
  Sender: FDA-Public Use
  Company Number: US-BAYER-2013-121674

PATIENT
  Age: 75 Year
  Sex: Female
  Weight: 72.56 kg

DRUGS (46)
  1. RIOCIGUAT (GUANYLATE CYCLASE STIMULATOR) [Suspect]
     Indication: PULMONARY HYPERTENSION
     Dosage: UNK
     Dates: start: 20130805
  2. RIOCIGUAT (GUANYLATE CYCLASE STIMULATOR) [Suspect]
     Indication: PULMONARY HYPERTENSION
     Dosage: UNK
     Dates: start: 20130819
  3. RIOCIGUAT (GUANYLATE CYCLASE STIMULATOR) [Suspect]
     Indication: PULMONARY HYPERTENSION
     Dosage: UNK
     Dates: start: 20130904
  4. RIOCIGUAT (GUANYLATE CYCLASE STIMULATOR) [Suspect]
     Indication: PULMONARY HYPERTENSION
     Dosage: 1.5 MG, TID (TREATMENT)
     Route: 048
     Dates: start: 20130916
  5. RIOCIGUAT (GUANYLATE CYCLASE STIMULATOR) [Suspect]
     Indication: PULMONARY HYPERTENSION
     Dosage: 1.0 MG, TID (TREATMENT)
     Route: 048
  6. RIOCIGUAT (GUANYLATE CYCLASE STIMULATOR) [Suspect]
     Indication: PULMONARY HYPERTENSION
     Dosage: UNK
     Dates: start: 20130930
  7. RIOCIGUAT (GUANYLATE CYCLASE STIMULATOR) [Suspect]
     Indication: PULMONARY HYPERTENSION
     Dosage: UNK
     Dates: start: 20131028
  8. WARFARIN [Concomitant]
     Indication: AORTIC VALVE REPLACEMENT
     Dosage: 5 MG, QD
     Route: 048
     Dates: start: 1973
  9. CALCIUM +VIT D [Concomitant]
     Indication: BONE DISORDER
     Dosage: 800 MG, BID
     Route: 048
     Dates: start: 2011
  10. FERROUS FUMARATE [Concomitant]
     Indication: ANAEMIA
     Dosage: 325 MG, BID
     Route: 048
     Dates: start: 1993
  11. METOPROLOL [Concomitant]
     Indication: ATRIAL FIBRILLATION
     Dosage: 12.5 MG, BID
     Route: 048
     Dates: start: 2010
  12. OXYGEN [Concomitant]
     Indication: PULMONARY EMBOLISM
     Dosage: 2L, QD
     Route: 045
     Dates: start: 2012
  13. DIGOXIN [Concomitant]
     Indication: AORTIC VALVE REPLACEMENT
     Dosage: 0.25 MG, QD
     Route: 048
     Dates: start: 1973, end: 20130806
  14. LASIX [Concomitant]
     Indication: CARDIAC FAILURE CONGESTIVE
     Dosage: 80 MG, QD
     Route: 048
     Dates: start: 2008, end: 20130816
  15. LASIX [Concomitant]
     Indication: OEDEMA PERIPHERAL
     Dosage: 80 MG, BID
     Route: 048
     Dates: start: 20130816, end: 20130909
  16. LASIX [Concomitant]
     Indication: WEIGHT INCREASED
     Dosage: 80 MG, QD
     Route: 048
     Dates: start: 20130909, end: 20130925
  17. LASIX [Concomitant]
     Indication: CARDIAC FAILURE CONGESTIVE
     Dosage: 80 MG, BID
     Route: 048
     Dates: start: 20130925
  18. POTASSIUM [Concomitant]
     Indication: HYPOKALAEMIA
     Dosage: 10 MEQ, QD
     Route: 048
     Dates: start: 2011, end: 20130904
  19. POTASSIUM [Concomitant]
     Indication: MINERAL SUPPLEMENTATION
     Dosage: 20 MEQ, BID
     Route: 048
     Dates: start: 20130905, end: 20130909
  20. POTASSIUM [Concomitant]
     Indication: HYPOKALAEMIA
     Dosage: 10 MEQ, BID
     Route: 048
     Dates: start: 20130909, end: 20130911
  21. POTASSIUM [Concomitant]
     Indication: HYPOKALAEMIA
     Dosage: 20 MEQ, BID
     Route: 048
     Dates: start: 20131001, end: 20131003
  22. POTASSIUM [Concomitant]
     Indication: HYPOKALAEMIA
     Dosage: 10 MEQ, BID
     Route: 048
     Dates: start: 20131004
  23. POTASSIUM [Concomitant]
     Indication: HYPOKALAEMIA
     Dosage: 40 MEQ, EXTENDED RELEASE, Q4HRS
     Dates: start: 20131011, end: 20131011
  24. POTASSIUM [Concomitant]
     Indication: HYPOKALAEMIA
     Dosage: 40 MEQ, ONCE
     Route: 042
     Dates: start: 20131006, end: 20131006
  25. POTASSIUM [Concomitant]
     Indication: HYPOKALAEMIA
     Dosage: 30 MEQ, ONCE
     Route: 042
     Dates: start: 20131007, end: 20131010
  26. POTASSIUM [Concomitant]
     Indication: HYPOKALAEMIA
     Dosage: 10 MEQ, PRN
     Route: 042
     Dates: start: 20131007, end: 20131009
  27. POTASSIUM [Concomitant]
     Indication: HYPOKALAEMIA
     Dosage: 50 MEQ, PRN
     Route: 042
     Dates: start: 20131005, end: 20131006
  28. METOLAZONE [Concomitant]
     Indication: OEDEMA PERIPHERAL
     Dosage: 5 MG, QD
     Route: 048
     Dates: start: 20130905
  29. DULCOLAX STOOL SOFTENER [Concomitant]
     Indication: CONSTIPATION
     Dosage: 10 MG, QD, PRN
     Route: 048
     Dates: start: 20130909
  30. PRILOSEC [Concomitant]
     Indication: GASTROOESOPHAGEAL REFLUX DISEASE
     Dosage: 40 MG, QD
     Route: 048
     Dates: start: 2009
  31. ZAROXOLYN [Concomitant]
     Indication: OEDEMA PERIPHERAL
     Dosage: 5 MG, QD
     Route: 048
     Dates: start: 20130905, end: 20130909
  32. ZAROXOLYN [Concomitant]
     Indication: WEIGHT INCREASED
     Dosage: 5 MG, QD
     Route: 048
     Dates: start: 20131001, end: 20131003
  33. ZAROXOLYN [Concomitant]
     Indication: OEDEMA PERIPHERAL
     Dosage: 20 MEQ, BIW
     Route: 048
     Dates: start: 20131007
  34. CEFTRIAXONE [Concomitant]
     Indication: URINARY TRACT INFECTION
     Dosage: 1 G, QD
     Route: 042
     Dates: start: 20131007, end: 201310
  35. FENTANYL [Concomitant]
     Indication: OESOPHAGOGASTRODUODENOSCOPY
     Dosage: 25 ?G, PRN
     Route: 042
     Dates: start: 20131009, end: 20131009
  36. LACTATED RINGER^S [Concomitant]
     Indication: OESOPHAGOGASTRODUODENOSCOPY
     Dosage: 50 ML, ONCE
     Route: 042
     Dates: start: 20131009, end: 20131009
  37. LIDOCAINE [Concomitant]
     Indication: OESOPHAGOGASTRODUODENOSCOPY
     Dosage: 30 MG, ONCE
     Route: 042
     Dates: start: 20131009, end: 20131009
  38. ZOFRAN [Concomitant]
     Indication: NAUSEA
     Dosage: 40 MG, ONCE
     Route: 042
     Dates: start: 20131005, end: 20131005
  39. PROPOFOL [Concomitant]
     Indication: OESOPHAGOGASTRODUODENOSCOPY
     Dosage: 20 MG, BID
     Route: 042
     Dates: start: 20131009, end: 20131009
  40. NORMAL SALINE [Concomitant]
     Indication: FLUID REPLACEMENT
     Dosage: 1500 ML, ONCE
     Route: 042
     Dates: start: 20131005, end: 20131005
  41. NORMAL SALINE [Concomitant]
     Indication: FLUID REPLACEMENT
     Dosage: 10 ML, BID
     Route: 042
     Dates: start: 20131006, end: 20131011
  42. NORMAL SALINE [Concomitant]
     Indication: FLUID REPLACEMENT
     Dosage: 100ML/HR
     Dates: start: 20131006, end: 20131010
  43. TYLENOL REGULAR [Concomitant]
     Indication: PAIN
     Dosage: 850 MG, ONCE
     Route: 048
     Dates: start: 20131009, end: 20131009
  44. TYLENOL REGULAR [Concomitant]
     Indication: PAIN
     Dosage: 650 MG, PRN
     Route: 048
     Dates: start: 20130907
  45. MILK OF MAGNESIA [Concomitant]
     Indication: CONSTIPATION
     Dosage: UNK
  46. MIRALAX [Concomitant]
     Indication: CONSTIPATION
     Dosage: UNK

REACTIONS (3)
  - International normalised ratio increased [Recovered/Resolved]
  - Gastrointestinal haemorrhage [Recovered/Resolved]
  - Anaemia [Recovered/Resolved]
